FAERS Safety Report 5289043-6 (Version None)
Quarter: 2007Q2

REPORT INFORMATION
  Report Type: 
  Country: None (occurrence: None)
  Receive Date: 20070405
  Receipt Date: 20070326
  Transmission Date: 20071010
  Serious: Yes (Other)
  Sender: FDA-Public Use
  Company Number: US-PFIZER INC-2007025776

PATIENT
  Sex: Female
  Weight: 63.5 kg

DRUGS (10)
  1. CHANTIX [Suspect]
     Indication: SMOKING CESSATION THERAPY
  2. EFFEXOR [Concomitant]
  3. WELLBUTRIN [Concomitant]
  4. SEROQUEL [Concomitant]
  5. KLONOPIN [Concomitant]
  6. DIOVAN HCT [Concomitant]
  7. LOPRESSOR [Concomitant]
  8. PLENDIL [Concomitant]
  9. ADVAIR DISKUS 100/50 [Concomitant]
  10. ALL OTHER THERAPEUTIC PRODUCTS [Concomitant]

REACTIONS (2)
  - DEPRESSION [None]
  - SOCIAL AVOIDANT BEHAVIOUR [None]
